FAERS Safety Report 4318727-9 (Version None)
Quarter: 2004Q1

REPORT INFORMATION
  Report Type: 
  Country: None (occurrence: None)
  Receive Date: 20040315
  Receipt Date: 20040220
  Transmission Date: 20041129
  Serious: Yes (Hospitalization)
  Sender: FDA-Public Use
  Company Number: B0319369A

PATIENT
  Age: 68 Year
  Sex: Male
  Weight: 59.8748 kg

DRUGS (2)
  1. MELPHALAN (FORMULATION UNKNOWN) (MELPHALAN) [Suspect]
     Indication: MULTIPLE MYELOMA
     Dosage: 10 MG/PER DAY; UNKNOWN
     Route: 065
     Dates: start: 19961001, end: 20001128
  2. PREDNISOLONE [Suspect]
     Indication: MULTIPLE MYELOMA
     Dosage: 40 MG/PER DAY; UNKNOWN
     Route: 065
     Dates: start: 19961001

REACTIONS (6)
  - ANAEMIA [None]
  - BLOOD IMMUNOGLOBULIN G INCREASED [None]
  - HEPATIC NEOPLASM MALIGNANT [None]
  - LUNG ADENOCARCINOMA [None]
  - PROTEIN INDUCED BY VITAMIN K ABSENCE OR ANTAGONIST II INCREASED [None]
  - SEPSIS [None]
